FAERS Safety Report 7902445-1 (Version None)
Quarter: 2011Q4

REPORT INFORMATION
  Report Type: 
  Country: None (occurrence: None)
  Receive Date: 20111108
  Receipt Date: 20111102
  Transmission Date: 20120403
  Serious: Yes (Hospitalization, Other)
  Sender: FDA-Public Use
  Company Number: FR-PFIZER INC-2011214855

PATIENT
  Age: 77 Year
  Sex: Male

DRUGS (7)
  1. ATORVASTATIN CALCIUM [Suspect]
     Indication: MYOCARDIAL ISCHAEMIA
     Dosage: UNK
     Route: 048
     Dates: end: 20110813
  2. ASPIRIN [Concomitant]
     Dosage: UNK
  3. COLCHICINE [Suspect]
     Dosage: 2 TABLETS ON THE SECOND DAY
     Route: 048
     Dates: start: 20110809, end: 20110809
  4. COLCHICINE [Suspect]
     Indication: GOUT
     Dosage: 3 TABLETS ON FIRST DAY
     Route: 048
     Dates: start: 20110808, end: 20110813
  5. PERINDOPRIL ERBUMINE [Suspect]
     Indication: MYOCARDIAL ISCHAEMIA
     Dosage: UNK
     Route: 048
     Dates: end: 20110813
  6. COLCHICINE [Suspect]
     Dosage: THEN ONE TABLET DAILY
     Route: 048
     Dates: start: 20110810, end: 20110813
  7. PLAVIX [Concomitant]
     Dosage: UNK

REACTIONS (23)
  - PULSE PRESSURE DECREASED [None]
  - DRUG INTERACTION [None]
  - GOUT [None]
  - ABDOMINAL PAIN LOWER [None]
  - HEART RATE INCREASED [None]
  - HYDROCHOLECYSTIS [None]
  - DEHYDRATION [None]
  - BLOOD FIBRINOGEN INCREASED [None]
  - ABDOMINAL PAIN UPPER [None]
  - OEDEMA PERIPHERAL [None]
  - WHITE BLOOD CELLS URINE POSITIVE [None]
  - RED BLOOD CELL COUNT ABNORMAL [None]
  - ATRIAL FIBRILLATION [None]
  - BUNDLE BRANCH BLOCK LEFT [None]
  - RENAL FAILURE ACUTE [None]
  - HYPERTENSION [None]
  - METABOLIC ACIDOSIS [None]
  - ARTHRALGIA [None]
  - PAIN IN EXTREMITY [None]
  - RHABDOMYOLYSIS [None]
  - CHEST PAIN [None]
  - SOMNOLENCE [None]
  - FLATULENCE [None]
